FAERS Safety Report 24697699 (Version 1)
Quarter: 2024Q4

REPORT INFORMATION
  Report Type: Spontaneous
  Country: CL (occurrence: CL)
  Receive Date: 20241204
  Receipt Date: 20241204
  Transmission Date: 20250115
  Serious: Yes (Other)
  Sender: GE HEALTHCARE
  Company Number: CL-GE HEALTHCARE-2024CSU013922

PATIENT
  Age: 62 Year
  Sex: Female
  Weight: 68 kg

DRUGS (1)
  1. VISIPAQUE [Suspect]
     Active Substance: IODIXANOL
     Indication: Computerised tomogram abdomen
     Dosage: 78 ML, TOTAL
     Route: 065
     Dates: start: 20241122, end: 20241122

REACTIONS (4)
  - Oxygen saturation decreased [Recovered/Resolved]
  - Tremor [Unknown]
  - Cyanosis [Unknown]
  - Dyspnoea [Unknown]

NARRATIVE: CASE EVENT DATE: 20241122
